FAERS Safety Report 21605555 (Version 1)
Quarter: 2022Q4

REPORT INFORMATION
  Report Type: Other
  Country: None (occurrence: CN)
  Receive Date: 20221116
  Receipt Date: 20221116
  Transmission Date: 20230113
  Serious: No
  Sender: FDA-Public Use
  Company Number: CN-Stason Pharmaceuticals, Inc.-2134980

PATIENT
  Age: 74 Year
  Sex: Female

DRUGS (3)
  1. SELEGILINE HYDROCHLORIDE [Suspect]
     Active Substance: SELEGILINE HYDROCHLORIDE
     Indication: Parkinson^s disease
     Route: 048
  2. PIRIBEDIL [Concomitant]
     Active Substance: PIRIBEDIL
     Route: 065
  3. BENSERAZIDE HYDROCHLORIDE\LEVODOPA [Suspect]
     Active Substance: BENSERAZIDE HYDROCHLORIDE\LEVODOPA
     Route: 065

REACTIONS (2)
  - Intentional product misuse [Unknown]
  - Parkinsonism hyperpyrexia syndrome [Recovered/Resolved]
